FAERS Safety Report 11154824 (Version 1)
Quarter: 2015Q2

REPORT INFORMATION
  Report Type: Spontaneous
  Country: IT (occurrence: IT)
  Receive Date: 20150602
  Receipt Date: 20150602
  Transmission Date: 20150821
  Serious: Yes (Death)
  Sender: FDA-Public Use
  Company Number: IT-ACCORD-031175

PATIENT
  Age: 35 Year
  Sex: Female

DRUGS (8)
  1. TRAMADOL/TRAMADOL HYDROCHLORIDE [Suspect]
     Active Substance: TRAMADOL HYDROCHLORIDE
  2. LAMOTRIGINE. [Suspect]
     Active Substance: LAMOTRIGINE
  3. DIPHENHYDRAMINE [Suspect]
     Active Substance: DIPHENHYDRAMINE
  4. MODAFINIL. [Suspect]
     Active Substance: MODAFINIL
  5. ZOPICLONE [Suspect]
     Active Substance: ZOPICLONE
  6. VENLAFAXINE [Suspect]
     Active Substance: VENLAFAXINE HYDROCHLORIDE
  7. ZOLPIDEM [Suspect]
     Active Substance: ZOLPIDEM\ZOLPIDEM TARTRATE
  8. PREGABALIN. [Suspect]
     Active Substance: PREGABALIN

REACTIONS (7)
  - Completed suicide [Fatal]
  - Hypersensitivity vasculitis [Fatal]
  - Intentional overdose [None]
  - Swelling face [None]
  - Overdose [Fatal]
  - Erythema [None]
  - Toxicity to various agents [None]
